FAERS Safety Report 5478540-6 (Version None)
Quarter: 2007Q4

REPORT INFORMATION
  Report Type: 
  Country: None (occurrence: None)
  Receive Date: 20071005
  Receipt Date: 20071003
  Transmission Date: 20080405
  Serious: Yes (Death)
  Sender: FDA-Public Use
  Company Number: ZA-SANOFI-SYNTHELABO-F01200701250

PATIENT
  Sex: Male

DRUGS (6)
  1. DEXTROPROPOXYPHENE [Concomitant]
  2. DIAZEPAM [Suspect]
  3. PANITUMUMAB [Suspect]
     Dosage: 370 MG
     Route: 041
     Dates: start: 20070731, end: 20070731
  4. OXALIPLATIN [Suspect]
     Indication: COLORECTAL CANCER
     Dosage: UNK
     Route: 041
     Dates: start: 20070731, end: 20070731
  5. LEUCOVORIN [Suspect]
     Dosage: UNK
     Route: 041
     Dates: start: 20070731
  6. FLUOROURACIL [Suspect]
     Dosage: UNK
     Route: 041
     Dates: start: 20070731

REACTIONS (1)
  - CIRCULATORY COLLAPSE [None]
